FAERS Safety Report 10038113 (Version 1)
Quarter: 2014Q1

REPORT INFORMATION
  Report Type: Spontaneous
  Country: US (occurrence: None)
  Receive Date: 20140306
  Receipt Date: 20140306
  Transmission Date: 20141002
  Serious: Yes (Hospitalization)
  Sender: FDA-Public Use
  Company Number: 163-21880-12112471

PATIENT
  Age: 48 Year
  Sex: Male
  Weight: 91.7 kg

DRUGS (17)
  1. REVLIMID (LENALIDOMIDE) (CAPSULES) [Suspect]
     Indication: PLASMA CELL MYELOMA
     Route: 048
     Dates: start: 20120921
  2. DEXAMETHASONE (DEXAMETHASONE) (UNKNOWN) [Suspect]
     Indication: PLASMA CELL MYELOMA
     Route: 048
     Dates: start: 20120920
  3. ELOTUZUMAB (ELOTUZUMAB) (UNKNOWN) [Suspect]
     Indication: PLASMA CELL MYELOMA
     Route: 042
     Dates: start: 20120921
  4. CIPRO (CIPROFLOXACIN) (UNKNOWN) [Concomitant]
  5. ADVIL (IBUPROFEN) (UNKNOWN) [Concomitant]
  6. PRILOSEC (OMEPRAZOLE) (UNKNOWN) [Concomitant]
  7. DURAGESIC (FENTANYL) (POULTICE OR PATCH) [Concomitant]
  8. DILAUDID (HYDROMORPHONE HYDROCHLORIDE) (UNKNOWN) [Concomitant]
  9. BENADRYL (CLONALIN) (UNKNOWN) [Concomitant]
  10. LIDODERM (LIDOCAINE) (POULTICE OR PATCH) [Concomitant]
  11. POTASSIUM AND MAGNESIUM ASPARTATE (KALIUM-MAGNESIUM-ASPARGINAT) (UNKNOWN) [Concomitant]
  12. REMERON (MIRTAZAPINE) (UNKNOWN) [Concomitant]
  13. TYLENOL (PARACETAMOL) (UNKNOWN) [Concomitant]
  14. VITAMIN D (ERGOCALCIFEROL) (UNKNOWN) [Concomitant]
  15. PERCOCET (OXYCOCET) (UNKNOWN) [Concomitant]
  16. ASPIRIN (ACETYLSALICYLIC ACID) (UNKNOWN) (ACETYLSALICYLIC ACID) [Concomitant]
  17. ZOMETA (ZOLEDRONIC ACID) [Concomitant]

REACTIONS (2)
  - Musculoskeletal chest pain [None]
  - Musculoskeletal pain [None]
